FAERS Safety Report 8370243-3 (Version None)
Quarter: 2012Q2

REPORT INFORMATION
  Report Type: 
  Country: None (occurrence: None)
  Receive Date: 20120518
  Receipt Date: 20120516
  Transmission Date: 20120825
  Serious: Yes (Death)
  Sender: FDA-Public Use
  Company Number: PL-ABBOTT-12P-129-0928930-00

PATIENT
  Sex: Male
  Weight: 65.5 kg

DRUGS (1)
  1. HUMIRA [Suspect]
     Indication: RHEUMATOID ARTHRITIS
     Route: 058
     Dates: start: 20100824, end: 20120402

REACTIONS (1)
  - SUDDEN DEATH [None]
